FAERS Safety Report 19274808 (Version 1)
Quarter: 2021Q2

REPORT INFORMATION
  Report Type: Spontaneous
  Country: US (occurrence: US)
  Receive Date: 20210519
  Receipt Date: 20210519
  Transmission Date: 20210717
  Serious: Yes (Death)
  Sender: FDA-Public Use
  Company Number: None

PATIENT
  Age: 13 Year
  Sex: Female
  Weight: 54 kg

DRUGS (5)
  1. FLUOXETINE [Suspect]
     Active Substance: FLUOXETINE HYDROCHLORIDE
     Indication: DEPRESSION
     Route: 048
     Dates: start: 20210415, end: 20210502
  2. VENTOLIN HFA 2 PUFFS EVERY 4?6 HR PRN [Concomitant]
     Dates: start: 20170327, end: 20210502
  3. INTRANASAL FLUTICASONE 1 PUFF PER NARE DAILY [Concomitant]
     Dates: start: 20210317, end: 20210503
  4. MONTELUKAST 5MG DAILY [Concomitant]
     Dates: start: 20140827, end: 20210502
  5. ZYRTEC 10 MG DAILY [Concomitant]
     Dates: start: 20090507, end: 20210502

REACTIONS (1)
  - Completed suicide [None]

NARRATIVE: CASE EVENT DATE: 20210502
